FAERS Safety Report 8488695-7 (Version None)
Quarter: 2012Q3

REPORT INFORMATION
  Report Type: 
  Country: None (occurrence: None)
  Receive Date: 20120705
  Receipt Date: 20110331
  Transmission Date: 20120928
  Serious: Yes (Hospitalization, Disabling, Other)
  Sender: FDA-Public Use
  Company Number: US-BAYER-2011-021253

PATIENT
  Sex: Male

DRUGS (8)
  1. SIMVASTATIN [Concomitant]
     Dosage: 20 MG, HS
  2. AVELOX [Suspect]
     Indication: BRONCHITIS
  3. AVELOX [Suspect]
     Indication: SINUSITIS
     Dosage: 400 MG, QD
     Route: 048
     Dates: start: 20090330
  4. METOPROLOL SUCCINATE [Concomitant]
  5. BENICAR HCT [Concomitant]
     Dosage: 40/12.5, QD
  6. AMLODIPINE [Concomitant]
     Dosage: 10 MG, UNK
  7. ASPIRIN [Concomitant]
  8. SOMA [Concomitant]

REACTIONS (10)
  - ANHEDONIA [None]
  - TENDON RUPTURE [None]
  - INJURY [None]
  - ANXIETY [None]
  - TENDON DISORDER [None]
  - DEFORMITY [None]
  - PAIN [None]
  - LIMB DISCOMFORT [None]
  - MUSCULAR WEAKNESS [None]
  - JOINT INJURY [None]
